FAERS Safety Report 5718792-8 (Version None)
Quarter: 2008Q2

REPORT INFORMATION
  Report Type: 
  Country: None (occurrence: None)
  Receive Date: 20080425
  Receipt Date: 20080423
  Transmission Date: 20081010
  Serious: Yes (Death)
  Sender: FDA-Public Use
  Company Number: TW-BOEHRINGER INGELHEIM GMBH, GERMANY-2008-DE-02438GD

PATIENT

DRUGS (1)
  1. MORPHINE [Suspect]

REACTIONS (1)
  - POISONING [None]
